FAERS Safety Report 8934236 (Version 1)
Quarter: 2012Q4

REPORT INFORMATION
  Report Type: 
  Country: US (occurrence: US)
  Receive Date: 20121129
  Receipt Date: 20121129
  Transmission Date: 20130627
  Serious: Yes (Other)
  Sender: FDA-Public Use
  Company Number: PHEH2012US017260

PATIENT
  Sex: Female

DRUGS (5)
  1. RECLAST [Suspect]
     Indication: OSTEOPOROSIS
     Dosage: UNK
     Route: 042
  2. LEVOTHYROXINE [Concomitant]
  3. PRILOSEC [Concomitant]
  4. LATANOPROST [Concomitant]
  5. MULTIVITAMINS [Concomitant]

REACTIONS (7)
  - Glaucoma [Unknown]
  - Optic nerve disorder [Unknown]
  - Alopecia [Unknown]
  - Incorrect drug administration duration [Unknown]
  - Myalgia [Unknown]
  - Pain in extremity [Unknown]
  - Pain [Unknown]
